FAERS Safety Report 4454844-0 (Version None)
Quarter: 2004Q3

REPORT INFORMATION
  Report Type: 
  Country: None (occurrence: None)
  Receive Date: 20040826
  Receipt Date: 20040611
  Transmission Date: 20050211
  Serious: Yes (Disabling)
  Sender: FDA-Public Use
  Company Number: WAES 0406USA01370

PATIENT
  Age: 69 Year
  Sex: Female
  Weight: 58.9676 kg

DRUGS (5)
  1. ZETIA [Suspect]
     Indication: BLOOD CHOLESTEROL INCREASED
     Dosage: 10 MG/DAILY/PO
     Route: 048
     Dates: start: 20040405, end: 20040601
  2. KLONOPIN [Concomitant]
  3. NASACORT AQ [Concomitant]
  4. ZOCOR [Concomitant]
  5. ZYRTEC [Concomitant]

REACTIONS (1)
  - HEADACHE [None]
